FAERS Safety Report 4829221-0 (Version None)
Quarter: 2005Q4

REPORT INFORMATION
  Report Type: 
  Country: None (occurrence: None)
  Receive Date: 20051028
  Receipt Date: 20050810
  Transmission Date: 20060501
  Serious: No
  Sender: FDA-Public Use
  Company Number: COT_0076_2005

PATIENT
  Age: 44 Year
  Sex: Female
  Weight: 84.369 kg

DRUGS (9)
  1. VENTAVIS [Suspect]
     Indication: PULMONARY HYPERTENSION
     Dosage: 5 MCG 9XD IH
     Route: 055
     Dates: start: 20050519, end: 20050523
  2. VENTAVIS [Suspect]
     Indication: PULMONARY HYPERTENSION
     Dosage: 5 MCG 9XD IH
     Route: 055
     Dates: start: 20050519, end: 20050523
  3. VENTAVIS [Suspect]
     Indication: PULMONARY HYPERTENSION
     Dosage: 2.5 MCG VARIABLE IH
     Route: 055
     Dates: start: 20050523
  4. DEMADEX [Concomitant]
  5. K-DUR 10 [Concomitant]
  6. PROCARDIA XL [Concomitant]
  7. PREVACID [Concomitant]
  8. TRACLEER [Concomitant]
  9. COUMADIN [Concomitant]

REACTIONS (7)
  - CHEST DISCOMFORT [None]
  - COUGH [None]
  - FATIGUE [None]
  - FLUSHING [None]
  - HEART RATE DECREASED [None]
  - NAUSEA [None]
  - THROAT IRRITATION [None]
